FAERS Safety Report 8891214 (Version 1)
Quarter: 2012Q4

REPORT INFORMATION
  Report Type: 
  Country: US (occurrence: US)
  Receive Date: 20121107
  Receipt Date: 20121107
  Transmission Date: 20130627
  Serious: No
  Sender: FDA-Public Use
  Company Number: GB-ASTRAZENECA-2012SE81706

PATIENT
  Age: 52 Year
  Sex: Female

DRUGS (3)
  1. SYMBICORT PMDI [Suspect]
     Route: 055
  2. LEVALBUTEROL [Suspect]
     Route: 065
  3. VENTOLIN [Suspect]
     Route: 065

REACTIONS (4)
  - Asthma [Unknown]
  - Feeling abnormal [Unknown]
  - Therapeutic response unexpected [Unknown]
  - Drug dose omission [Unknown]
